FAERS Safety Report 4559958-2 (Version None)
Quarter: 2005Q1

REPORT INFORMATION
  Report Type: 
  Country: None (occurrence: None)
  Receive Date: 20050120
  Receipt Date: 20050120
  Transmission Date: 20050727
  Serious: Yes (Other)
  Sender: FDA-Public Use
  Company Number: None

PATIENT
  Age: 39 Year
  Sex: Male
  Weight: 68.0396 kg

DRUGS (6)
  1. ENALAPRIL MALEATE [Suspect]
     Indication: HYPERTENSION
     Dosage: PO TWICE DAILY
     Route: 048
     Dates: start: 20040901
  2. ALLOPURINOL [Concomitant]
  3. ULTRACET [Concomitant]
  4. ZANFLEX [Concomitant]
  5. PAXIL CR [Concomitant]
  6. ACO[JEX [Concomitant]

REACTIONS (5)
  - GASTROENTERITIS [None]
  - HEADACHE [None]
  - NAUSEA [None]
  - PHARMACEUTICAL PRODUCT COMPLAINT [None]
  - VOMITING [None]
